FAERS Safety Report 9866992 (Version 1)
Quarter: 2014Q1

REPORT INFORMATION
  Report Type: Spontaneous
  Country: IN (occurrence: IN)
  Receive Date: 20140204
  Receipt Date: 20140204
  Transmission Date: 20141002
  Serious: Yes (Death, Other)
  Sender: FDA-Public Use
  Company Number: IN-ROXANE LABORATORIES, INC.-2014-RO-00123RO

PATIENT
  Age: 48 Year
  Sex: Male

DRUGS (9)
  1. ZIDOVUDINE [Suspect]
     Indication: HIV TEST POSITIVE
  2. PREDNISONE [Suspect]
     Indication: DIFFUSE LARGE B-CELL LYMPHOMA
     Dosage: 100 MG
     Route: 048
  3. FLUCONAZOLE [Suspect]
     Indication: PROPHYLAXIS
     Route: 048
  4. LAMIVUDINE [Suspect]
     Indication: HIV TEST POSITIVE
  5. EFAVIRENZ [Suspect]
     Indication: HIV TEST POSITIVE
  6. CYCLOPHOSPHAMIDE [Suspect]
     Indication: DIFFUSE LARGE B-CELL LYMPHOMA
     Dosage: 100 MG
     Route: 042
  7. HYDROXYDAUNORUBICIN [Suspect]
     Indication: DIFFUSE LARGE B-CELL LYMPHOMA
     Dosage: 75 MG
     Route: 042
  8. VINCRISTINE [Suspect]
     Indication: DIFFUSE LARGE B-CELL LYMPHOMA
     Dosage: 2 MG
     Route: 042
  9. TRIMETHOPRIM-SULFAMETHOXAZOLE [Suspect]
     Indication: PROPHYLAXIS

REACTIONS (4)
  - Multi-organ failure [Fatal]
  - Gynaecomastia [Unknown]
  - Diffuse large B-cell lymphoma [Unknown]
  - Sepsis [Unknown]
